FAERS Safety Report 13405596 (Version 1)
Quarter: 2017Q2

REPORT INFORMATION
  Report Type: Spontaneous
  Country: US (occurrence: US)
  Receive Date: 20170405
  Receipt Date: 20170405
  Transmission Date: 20170830
  Serious: Yes (Hospitalization)
  Sender: FDA-Public Use
  Company Number: US-PRESTIGE BRANDS -1065029

PATIENT
  Age: 80 Year
  Sex: Male

DRUGS (1)
  1. VITRON C [Suspect]
     Active Substance: DIETARY SUPPLEMENT
     Indication: IRON DEFICIENCY
     Route: 048
     Dates: start: 20170310, end: 20170310

REACTIONS (7)
  - Abasia [Not Recovered/Not Resolved]
  - Diarrhoea [Recovered/Resolved]
  - Gastric ulcer [Not Recovered/Not Resolved]
  - Hospitalisation [Unknown]
  - Rectal haemorrhage [Not Recovered/Not Resolved]
  - Intestinal obstruction [Recovered/Resolved]
  - White blood cell count increased [Not Recovered/Not Resolved]

NARRATIVE: CASE EVENT DATE: 20170312
